FAERS Safety Report 5922765-X (Version None)
Quarter: 2008Q4

REPORT INFORMATION
  Report Type: 
  Country: None (occurrence: None)
  Receive Date: 20081017
  Receipt Date: 20081007
  Transmission Date: 20090506
  Serious: Yes (Hospitalization)
  Sender: FDA-Public Use
  Company Number: US-WYE-H06275308

PATIENT
  Sex: Female

DRUGS (21)
  1. RAPAMUNE [Suspect]
     Indication: PROPHYLAXIS AGAINST TRANSPLANT REJECTION
     Route: 048
     Dates: start: 20060626
  2. RAPAMUNE [Suspect]
     Route: 048
  3. PROGRAF [Suspect]
     Indication: PROPHYLAXIS AGAINST TRANSPLANT REJECTION
     Route: 048
  4. PREDNISONE TAB [Suspect]
     Indication: PROPHYLAXIS AGAINST TRANSPLANT REJECTION
     Route: 048
     Dates: start: 20060128
  5. PREDNISONE TAB [Suspect]
     Route: 048
  6. PREDNISONE TAB [Suspect]
     Route: 048
  7. NORVASC [Concomitant]
     Dosage: UNKNOWN
     Dates: start: 20060316
  8. ASPIRIN [Concomitant]
     Dosage: UNKNOWN
     Dates: start: 20060316
  9. ARANESP [Concomitant]
     Dosage: UNKNOWN
     Dates: start: 20060316
  10. CARDINA [Concomitant]
     Dosage: UNKNOWN
     Dates: start: 20060316
  11. FERROUS SULFATE [Concomitant]
     Dosage: UNKNOWN
     Dates: start: 20060316
  12. PROTONIX [Concomitant]
     Dosage: UNKNOWN
     Dates: start: 20060316
  13. ACTOS [Concomitant]
     Dosage: UNKNOWN
     Dates: start: 20060320
  14. INSULIN [Concomitant]
     Dosage: UNKNOWN
     Dates: start: 20040701
  15. CARVEDILOL [Concomitant]
     Dosage: UNKNOWN
     Dates: start: 20061201
  16. LANTUS [Concomitant]
     Dosage: UNKNOWN
  17. NOVOLOG [Concomitant]
     Dosage: UNKNOWN
  18. LASIX [Concomitant]
     Dosage: UNKNOWN
  19. ADVAIR DISKUS 100/50 [Concomitant]
     Dosage: UNKNOWN
  20. CELLCEPT [Suspect]
     Indication: PROPHYLAXIS AGAINST TRANSPLANT REJECTION
     Route: 048
     Dates: start: 20060321
  21. CELLCEPT [Suspect]
     Dosage: 500 MG, FREQUENCY ^21^
     Route: 048

REACTIONS (4)
  - ATRIAL FIBRILLATION [None]
  - CIRCULATORY COLLAPSE [None]
  - GASTRITIS [None]
  - SYNCOPE [None]
